FAERS Safety Report 17044704 (Version 3)
Quarter: 2019Q4

REPORT INFORMATION
  Report Type: Spontaneous
  Country: US (occurrence: US)
  Receive Date: 20191118
  Receipt Date: 20191224
  Transmission Date: 20200122
  Serious: Yes (Hospitalization)
  Sender: FDA-Public Use
  Company Number: US-ALLERGAN-1946424US

PATIENT
  Sex: Male

DRUGS (4)
  1. PROPRANOLOL [Concomitant]
     Active Substance: PROPRANOLOL HYDROCHLORIDE
  2. SEROQUEL [Concomitant]
     Active Substance: QUETIAPINE FUMARATE
     Dosage: AT NIGHT
     Route: 048
  3. NAMENDA XR [Suspect]
     Active Substance: MEMANTINE HYDROCHLORIDE
     Indication: CEREBRAL DISORDER
     Dosage: ^28XR^, ONCE DAILY IN THE MORNING
     Route: 048
     Dates: start: 2007
  4. LONG ACTING INSULIN [Concomitant]
     Active Substance: INSULIN NOS
     Indication: DIABETES MELLITUS
     Dosage: 1 DF, QD
     Dates: start: 20191203

REACTIONS (12)
  - Blood glucose decreased [Recovered/Resolved]
  - Abnormal behaviour [Recovered/Resolved]
  - Anxiety [Recovered/Resolved]
  - Delusion [Recovered/Resolved]
  - Psychotic disorder [Recovered/Resolved]
  - Memory impairment [Recovered/Resolved]
  - Eye disorder [Recovered/Resolved]
  - Spinal operation [Unknown]
  - Diabetic coma [Recovered/Resolved]
  - Chest pain [Recovered/Resolved]
  - Therapy cessation [Recovered/Resolved]
  - Off label use [Unknown]

NARRATIVE: CASE EVENT DATE: 20191105
